FAERS Safety Report 7918469-4 (Version None)
Quarter: 2011Q4

REPORT INFORMATION
  Report Type: 
  Country: None (occurrence: None)
  Receive Date: 20111116
  Receipt Date: 20110901
  Transmission Date: 20120403
  Serious: Yes (Death)
  Sender: FDA-Public Use
  Company Number: US-COVIDIEN/TYCO HEALTHCARE/MALLINCKRODT-T201101688

PATIENT
  Age: 43 Year
  Sex: Female

DRUGS (1)
  1. FENTANYL-100 [Suspect]

REACTIONS (1)
  - TOXICITY TO VARIOUS AGENTS [None]
